FAERS Safety Report 15368954 (Version 3)
Quarter: 2025Q4

REPORT INFORMATION
  Report Type: Report from Study
  Country: US (occurrence: US)
  Receive Date: 20180911
  Receipt Date: 20251112
  Transmission Date: 20260117
  Serious: Yes (Life-Threatening, Hospitalization, Other)
  Sender: ROCHE
  Company Number: US-ROCHE-2181571

PATIENT
  Age: 58 Year
  Sex: Female
  Weight: 58.97 kg

DRUGS (6)
  1. PERJETA [Suspect]
     Active Substance: PERTUZUMAB
     Indication: Breast cancer
     Route: 042
     Dates: start: 201612, end: 201702
  2. PERJETA [Suspect]
     Active Substance: PERTUZUMAB
     Indication: Breast cancer metastatic
     Route: 042
     Dates: start: 201611, end: 201702
  3. HERCEPTIN [Suspect]
     Active Substance: TRASTUZUMAB
     Indication: Breast cancer metastatic
     Route: 042
     Dates: start: 201612, end: 201710
  4. HERCEPTIN [Suspect]
     Active Substance: TRASTUZUMAB
     Indication: Product used for unknown indication
     Route: 042
     Dates: start: 2018
  5. HERCEPTIN [Suspect]
     Active Substance: TRASTUZUMAB
     Route: 042
     Dates: start: 201611, end: 201710
  6. OGIVRI [Concomitant]
     Active Substance: TRASTUZUMAB-DKST

REACTIONS (6)
  - Breast cancer metastatic [Unknown]
  - Cerebrovascular accident [Recovered/Resolved]
  - Gait disturbance [Recovered/Resolved]
  - Balance disorder [Not Recovered/Not Resolved]
  - Osteonecrosis [Not Recovered/Not Resolved]
  - Brain neoplasm [Not Recovered/Not Resolved]

NARRATIVE: CASE EVENT DATE: 20180301
